FAERS Safety Report 20432224 (Version 1)
Quarter: 2022Q1

REPORT INFORMATION
  Report Type: Spontaneous
  Country: US (occurrence: None)
  Receive Date: 20220204
  Receipt Date: 20220204
  Transmission Date: 20220423
  Serious: Yes (Hospitalization)
  Sender: FDA-Public Use
  Company Number: None

PATIENT
  Sex: Male
  Weight: 109 kg

DRUGS (4)
  1. DEXAMETHASONE [Suspect]
     Active Substance: DEXAMETHASONE
     Dates: end: 20211220
  2. MERCAPTOPURINE [Suspect]
     Active Substance: MERCAPTOPURINE
     Dates: end: 20211228
  3. METHOTREXATE [Suspect]
     Active Substance: METHOTREXATE
     Dosage: OTHER QUANTITY : 157.5MG;?
     Dates: end: 20211227
  4. VINCRISTINE SULFATE [Suspect]
     Active Substance: VINCRISTINE SULFATE
     Dates: end: 20211215

REACTIONS (11)
  - Cough [None]
  - Fatigue [None]
  - Chills [None]
  - Chills [None]
  - Pyrexia [None]
  - Tooth abscess [None]
  - Influenza [None]
  - Myalgia [None]
  - Diarrhoea [None]
  - Colitis [None]
  - Leukaemia [None]

NARRATIVE: CASE EVENT DATE: 20211228
